FAERS Safety Report 9170358 (Version 2)
Quarter: 2013Q3

REPORT INFORMATION
  Report Type: Spontaneous
  Country: US (occurrence: None)
  Receive Date: 20130308
  Receipt Date: 20130702
  Transmission Date: 20140515
  Serious: Yes (Hospitalization, Other)
  Sender: FDA-Public Use
  Company Number: AUR-APL-2013-01917

PATIENT
  Sex: Female
  Weight: 77.1 kg

DRUGS (9)
  1. LISINOPRIL (LISINOPRIL) [Suspect]
     Indication: RENAL DISORDER
  2. SERTRALINE (SERTRALINE ) [Suspect]
     Indication: PRODUCT USED FOR UNKNOWN INDICATION
  3. LYRICA (PREGABALIN) [Suspect]
     Indication: NEUROPATHY PERIPHERAL
  4. LYRICA (PREGABALIN) [Suspect]
     Indication: DIABETIC NEUROPATHY
  5. ASPIRIN (ACETYLSALICYCLIC ACID TABLET) [Concomitant]
  6. SIMVASTATIN (SIMVASTATIN) [Concomitant]
  7. METOPROLOL (METOPROLOL) [Concomitant]
  8. CLOPIDOGREL (CLOPIDOGREL) [Concomitant]
  9. LANUS (INSULIN GLARGINE) [Concomitant]

REACTIONS (6)
  - Vision blurred [None]
  - Dizziness [None]
  - Altered visual depth perception [None]
  - Myocardial infarction [None]
  - Treatment noncompliance [None]
  - Blood glucose increased [None]
